FAERS Safety Report 23007676 (Version 4)
Quarter: 2023Q4

REPORT INFORMATION
  Report Type: Spontaneous
  Country: US (occurrence: US)
  Receive Date: 20230929
  Receipt Date: 20231222
  Transmission Date: 20240109
  Serious: Yes (Other)
  Sender: FDA-Public Use
  Company Number: US-GLAXOSMITHKLINE-US2023AMR131229

PATIENT

DRUGS (1)
  1. ZEJULA [Suspect]
     Active Substance: NIRAPARIB
     Indication: Ovarian cancer
     Dosage: 200 MG, QD
     Dates: start: 20230830, end: 20231211

REACTIONS (4)
  - Kidney infection [Not Recovered/Not Resolved]
  - Hypertension [Recovering/Resolving]
  - Blood test abnormal [Not Recovered/Not Resolved]
  - Skin discolouration [Recovered/Resolved]
